FAERS Safety Report 16712037 (Version 1)
Quarter: 2019Q3

REPORT INFORMATION
  Report Type: Spontaneous
  Country: US (occurrence: US)
  Receive Date: 20190816
  Receipt Date: 20190816
  Transmission Date: 20191004
  Serious: No
  Sender: FDA-Public Use
  Company Number: US-BAYER-2019-146839

PATIENT
  Sex: Male

DRUGS (1)
  1. MIRALAX [Suspect]
     Active Substance: POLYETHYLENE GLYCOL 3350
     Indication: GASTROINTESTINAL DISORDER
     Dosage: LONGER THAN A WEEK

REACTIONS (4)
  - Constipation [None]
  - Abdominal pain [None]
  - Product use issue [None]
  - Muscle spasms [None]

NARRATIVE: CASE EVENT DATE: 201907
